FAERS Safety Report 25704439 (Version 1)
Quarter: 2025Q3

REPORT INFORMATION
  Report Type: Report from Study
  Country: US (occurrence: US)
  Receive Date: 20250820
  Receipt Date: 20250820
  Transmission Date: 20251021
  Serious: No
  Sender: SUNOVION
  Company Number: US-SMPA-2025SPA010403

PATIENT
  Age: 55 Year
  Sex: Male

DRUGS (9)
  1. ORGOVYX [Suspect]
     Active Substance: RELUGOLIX
     Indication: Prostate cancer
     Route: 048
  2. ORGOVYX [Suspect]
     Active Substance: RELUGOLIX
     Route: 048
  3. BRILINTA [Concomitant]
     Active Substance: TICAGRELOR
  4. ROSUVASTATIN [Concomitant]
     Active Substance: ROSUVASTATIN
  5. VALSARTAN [Concomitant]
     Active Substance: VALSARTAN
  6. BUPROPION [Concomitant]
     Active Substance: BUPROPION
  7. HYDROCHLOROTHIAZIDE [Concomitant]
     Active Substance: HYDROCHLOROTHIAZIDE
  8. MINOXIDIL [Concomitant]
     Active Substance: MINOXIDIL
  9. NEBIVOLOL [Concomitant]
     Active Substance: NEBIVOLOL

REACTIONS (1)
  - Nausea [Unknown]
